FAERS Safety Report 18759562 (Version 2)
Quarter: 2021Q1

REPORT INFORMATION
  Report Type: Spontaneous
  Country: US (occurrence: US)
  Receive Date: 20210120
  Receipt Date: 20210128
  Transmission Date: 20210419
  Serious: Yes (Death, Life-Threatening, Hospitalization, Other)
  Sender: FDA-Public Use
  Company Number: US-CIPLA LTD.-2021US00258

PATIENT

DRUGS (1)
  1. AMLODIPINE [Suspect]
     Active Substance: AMLODIPINE BESYLATE
     Indication: BLOOD PRESSURE ABNORMAL
     Dosage: UNK
     Route: 048

REACTIONS (8)
  - Distributive shock [Unknown]
  - Acute respiratory distress syndrome [Fatal]
  - Hypotension [Unknown]
  - Toxicity to various agents [Fatal]
  - Leukaemoid reaction [Fatal]
  - Coma [Unknown]
  - Intentional overdose [Fatal]
  - Cardio-respiratory arrest [Fatal]
